FAERS Safety Report 10217621 (Version 1)
Quarter: 2014Q2

REPORT INFORMATION
  Report Type: Spontaneous
  Country: US (occurrence: US)
  Receive Date: 20140604
  Receipt Date: 20140604
  Transmission Date: 20141212
  Serious: Yes (Hospitalization, Other)
  Sender: FDA-Public Use
  Company Number: US-BAXTER-2014BAX027458

PATIENT
  Age: 68 Year
  Sex: Female

DRUGS (2)
  1. DIANEAL LOW CALCIUM [Suspect]
     Indication: RENAL FAILURE CHRONIC
     Route: 033
  2. DIANEAL LOW CALCIUM [Suspect]
     Indication: RENAL FAILURE CHRONIC
     Route: 033
     Dates: start: 20140528

REACTIONS (7)
  - Fracture [Recovering/Resolving]
  - Back pain [Recovering/Resolving]
  - Pain in extremity [Unknown]
  - Anaemia [Recovering/Resolving]
  - Peripheral swelling [Recovering/Resolving]
  - White blood cell count increased [Unknown]
  - Hypotension [Recovering/Resolving]
